FAERS Safety Report 25260375 (Version 1)
Quarter: 2025Q2

REPORT INFORMATION
  Report Type: Spontaneous
  Country: US (occurrence: None)
  Receive Date: 20250501
  Receipt Date: 20250501
  Transmission Date: 20250716
  Serious: No
  Sender: FDA-CTU
  Company Number: None

PATIENT
  Age: 4 Year
  Sex: Male

DRUGS (1)
  1. VIGABATRIN [Suspect]
     Active Substance: VIGABATRIN
     Dosage: FREQUENCY : 3 TIMES A DAY;?
     Route: 048

REACTIONS (3)
  - Product use issue [None]
  - Product dose omission in error [None]
  - Medical device implantation [None]

NARRATIVE: CASE EVENT DATE: 20250430
